FAERS Safety Report 4469753-0 (Version None)
Quarter: 2004Q3

REPORT INFORMATION
  Report Type: 
  Country: None (occurrence: None)
  Receive Date: 20040920
  Receipt Date: 20040721
  Transmission Date: 20050211
  Serious: Yes (Death)
  Sender: FDA-Public Use
  Company Number: A-US2002-00379

PATIENT
  Age: 41 Year
  Sex: Female
  Weight: 56.7 kg

DRUGS (21)
  1. TRACLEER [Suspect]
     Indication: PULMONARY HYPERTENSION
     Dosage: SEE IMAGE
     Route: 048
     Dates: start: 20020312, end: 20020514
  2. TRACLEER [Suspect]
     Indication: PULMONARY HYPERTENSION
     Dosage: SEE IMAGE
     Route: 048
     Dates: start: 20031021, end: 20031103
  3. TRACLEER [Suspect]
     Indication: PULMONARY HYPERTENSION
     Dosage: SEE IMAGE
     Route: 048
     Dates: start: 20031104, end: 20031201
  4. TRACLEER [Suspect]
     Indication: PULMONARY HYPERTENSION
     Dosage: SEE IMAGE
     Route: 048
     Dates: start: 20031202, end: 20031215
  5. TRACLEER [Suspect]
     Indication: PULMONARY HYPERTENSION
     Dosage: SEE IMAGE
     Route: 048
     Dates: start: 20031216, end: 20040112
  6. TRACLEER [Suspect]
     Indication: PULMONARY HYPERTENSION
     Dosage: SEE IMAGE
     Route: 048
     Dates: start: 20040113, end: 20040308
  7. TRACLEER [Suspect]
     Indication: PULMONARY HYPERTENSION
     Dosage: SEE IMAGE
     Route: 048
     Dates: start: 20040309, end: 20040422
  8. TRACLEER [Suspect]
     Indication: PULMONARY HYPERTENSION
     Dosage: SEE IMAGE
     Route: 048
     Dates: start: 20040423
  9. FLOLAN [Concomitant]
  10. COUMADIN [Concomitant]
  11. POTASSIUM (POTASSIUM) [Concomitant]
  12. IMODIUM [Concomitant]
  13. ALDACTONE [Concomitant]
  14. XANAX [Concomitant]
  15. CLARITIN [Concomitant]
  16. IRON (IRON) [Concomitant]
  17. SYNTHROID [Concomitant]
  18. ZAROXOLYN [Concomitant]
  19. K-DUR (POTASSIUKM CHLORIDE) [Concomitant]
  20. DEMADEX [Concomitant]
  21. KLONOPIN [Concomitant]

REACTIONS (4)
  - ASCITES [None]
  - CHEST DISCOMFORT [None]
  - OEDEMA [None]
  - PULMONARY HYPERTENSION [None]
